FAERS Safety Report 7812598-1 (Version None)
Quarter: 2011Q4

REPORT INFORMATION
  Report Type: 
  Country: None (occurrence: None)
  Receive Date: 20111013
  Receipt Date: 20110928
  Transmission Date: 20120403
  Serious: Yes (Hospitalization)
  Sender: FDA-Public Use
  Company Number: US-ARROW GEN-2011-16225

PATIENT
  Age: 60 Year
  Sex: Male

DRUGS (1)
  1. TACROLIMUS [Suspect]
     Indication: LIVER TRANSPLANT
     Dosage: 1 MG BID

REACTIONS (8)
  - NEUROTOXICITY [None]
  - TREMOR [None]
  - ANXIETY [None]
  - CONFUSIONAL STATE [None]
  - CATATONIA [None]
  - APHASIA [None]
  - ARRHYTHMIA [None]
  - MUSCLE RIGIDITY [None]
